FAERS Safety Report 10463326 (Version 2)
Quarter: 2014Q3

REPORT INFORMATION
  Report Type: Report from Study
  Country: TR (occurrence: TR)
  Receive Date: 20140919
  Receipt Date: 20140919
  Transmission Date: 20150326
  Serious: Yes (Other)
  Sender: FDA-Public Use
  Company Number: TR-BRISTOL-MYERS SQUIBB COMPANY-21038641

PATIENT
  Age: 54 Year
  Sex: Female

DRUGS (12)
  1. EUTHYROX [Concomitant]
     Active Substance: LEVOTHYROXINE SODIUM
  2. THIOCTACID [Concomitant]
     Active Substance: .ALPHA.-LIPOIC ACID
  3. INSULIN [Concomitant]
     Active Substance: INSULIN NOS
  4. DIAFORMIN [Concomitant]
     Active Substance: METFORMIN HYDROCHLORIDE
  5. VENORUTON [Concomitant]
     Active Substance: TROXERUTIN
  6. HYDROCHLOROTHIAZIDE. [Concomitant]
     Active Substance: HYDROCHLOROTHIAZIDE
  7. LASIX [Concomitant]
     Active Substance: FUROSEMIDE
  8. BYETTA [Suspect]
     Active Substance: EXENATIDE
     Indication: TYPE 2 DIABETES MELLITUS
     Dosage: INJECTION?20MCG
     Route: 058
     Dates: start: 20140610, end: 20140726
  9. LANTUS [Concomitant]
     Active Substance: INSULIN GLARGINE
  10. HUMALOG [Concomitant]
     Active Substance: INSULIN LISPRO
  11. ASPIRIN. [Concomitant]
     Active Substance: ASPIRIN
  12. LYRICA [Concomitant]
     Active Substance: PREGABALIN

REACTIONS (7)
  - Loss of consciousness [Recovered/Resolved]
  - Eye movement disorder [Recovered/Resolved]
  - Hyperhidrosis [Recovered/Resolved]
  - Pain [Not Recovered/Not Resolved]
  - Chest pain [Not Recovered/Not Resolved]
  - Dyspnoea [Not Recovered/Not Resolved]
  - Nausea [Not Recovered/Not Resolved]

NARRATIVE: CASE EVENT DATE: 20140611
